FAERS Safety Report 6836425-4 (Version None)
Quarter: 2010Q3

REPORT INFORMATION
  Report Type: 
  Country: None (occurrence: None)
  Receive Date: 20100713
  Receipt Date: 20100603
  Transmission Date: 20110219
  Serious: Yes (Hospitalization)
  Sender: FDA-Public Use
  Company Number: JP-SANOFI-AVENTIS-2010SA001829

PATIENT
  Age: 79 Year
  Sex: Male
  Weight: 55 kg

DRUGS (5)
  1. PLAVIX [Suspect]
     Indication: LACUNAR INFARCTION
     Route: 048
     Dates: start: 20070915
  2. BLOPRESS [Concomitant]
     Indication: HYPERTENSION
     Route: 048
     Dates: start: 20030901
  3. AMARYL [Concomitant]
     Indication: DIABETES MELLITUS
     Route: 048
     Dates: start: 20030201
  4. PIOGLITAZONE HCL [Concomitant]
     Indication: DIABETES MELLITUS
     Route: 048
     Dates: start: 20030512
  5. BASEN [Concomitant]
     Indication: DIABETES MELLITUS
     Route: 048
     Dates: start: 20040412

REACTIONS (1)
  - PNEUMONIA ASPIRATION [None]
